FAERS Safety Report 5139452-0 (Version None)
Quarter: 2006Q4

REPORT INFORMATION
  Report Type: 
  Country: None (occurrence: None)
  Receive Date: 20061030
  Receipt Date: 20060719
  Transmission Date: 20070319
  Serious: No
  Sender: FDA-Public Use
  Company Number: US-GLAXOSMITHKLINE-A0612813A

PATIENT
  Age: 46 Year
  Sex: Female

DRUGS (6)
  1. SEREVENT [Suspect]
     Indication: RESTRICTIVE PULMONARY DISEASE
     Dosage: 1PUFF TWICE PER DAY
     Route: 055
  2. VERELAN PM [Concomitant]
  3. THEOPHYLLINE [Concomitant]
  4. TORSEMIDE [Concomitant]
  5. CLARINEX [Concomitant]
  6. POTASSIUM ACETATE [Concomitant]

REACTIONS (2)
  - PARAESTHESIA ORAL [None]
  - PHARMACEUTICAL PRODUCT COMPLAINT [None]
